FAERS Safety Report 9702116 (Version 1)
Quarter: 2013Q4

REPORT INFORMATION
  Report Type: Spontaneous
  Country: US (occurrence: US)
  Receive Date: 20131121
  Receipt Date: 20131121
  Transmission Date: 20140711
  Serious: No
  Sender: FDA-Public Use
  Company Number: US-MYLANLABS-2012S1023866

PATIENT
  Sex: Female

DRUGS (4)
  1. MAXZIDE TABLETS [Suspect]
  2. SYNTHROID [Suspect]
  3. PREMARIN [Suspect]
  4. PRILOSEC [Suspect]

REACTIONS (1)
  - Blood thyroid stimulating hormone increased [Not Recovered/Not Resolved]
